FAERS Safety Report 17315804 (Version 9)
Quarter: 2021Q2

REPORT INFORMATION
  Report Type: Spontaneous
  Country: US (occurrence: US)
  Receive Date: 20200124
  Receipt Date: 20210519
  Transmission Date: 20210716
  Serious: Yes (Other)
  Sender: FDA-Public Use
  Company Number: US-PFIZER INC-2020019493

PATIENT
  Age: 68 Year
  Sex: Male

DRUGS (1)
  1. XELJANZ XR [Suspect]
     Active Substance: TOFACITINIB CITRATE
     Dosage: 11 MG, DAILY

REACTIONS (9)
  - Haemorrhage [Unknown]
  - Peripheral swelling [Unknown]
  - Psoriasis [Unknown]
  - Erythema [Not Recovered/Not Resolved]
  - Illness [Unknown]
  - Skin haemorrhage [Unknown]
  - Pain of skin [Unknown]
  - Pruritus [Unknown]
  - Tremor [Unknown]
